FAERS Safety Report 6743343-9 (Version None)
Quarter: 2010Q2

REPORT INFORMATION
  Report Type: 
  Country: None (occurrence: None)
  Receive Date: 20100527
  Receipt Date: 20100512
  Transmission Date: 20101027
  Serious: Yes (Other)
  Sender: FDA-Public Use
  Company Number: US-ELI_LILLY_AND_COMPANY-US201005004449

PATIENT
  Sex: Female

DRUGS (4)
  1. FORTEO [Suspect]
     Indication: OSTEOPOROSIS
     Dosage: 20 UG, DAILY (1/D)
     Dates: start: 20100401, end: 20100509
  2. KEPPRA [Concomitant]
  3. KLONOPIN [Concomitant]
  4. NEURONTIN [Concomitant]
     Dosage: UNK, 2/D

REACTIONS (7)
  - CONVULSION [None]
  - HEADACHE [None]
  - MALAISE [None]
  - NAUSEA [None]
  - NECK PAIN [None]
  - SOMNOLENCE [None]
  - WEIGHT DECREASED [None]
